FAERS Safety Report 16258398 (Version 1)
Quarter: 2019Q2

REPORT INFORMATION
  Report Type: Report from Study
  Country: RU (occurrence: RU)
  Receive Date: 20190430
  Receipt Date: 20190430
  Transmission Date: 20190711
  Serious: Yes (Hospitalization, Other)
  Sender: FDA-Public Use
  Company Number: RU-ASTRAZENECA-2019SE62252

PATIENT
  Age: 63 Year
  Sex: Female
  Weight: 97 kg

DRUGS (8)
  1. METFORMIN [Concomitant]
     Active Substance: METFORMIN HYDROCHLORIDE
  2. ASPARCAM [Concomitant]
  3. FORXIGA [Suspect]
     Active Substance: DAPAGLIFLOZIN
     Indication: TYPE 2 DIABETES MELLITUS
     Route: 048
     Dates: start: 201812
  4. ATORVASTATIN [Concomitant]
     Active Substance: ATORVASTATIN
  5. MANINIL [Concomitant]
     Active Substance: GLYBURIDE
  6. INSULIN [Concomitant]
     Active Substance: INSULIN NOS
  7. CONCOR [Concomitant]
     Active Substance: BISOPROLOL FUMARATE
  8. INDAPAMIDE. [Concomitant]
     Active Substance: INDAPAMIDE

REACTIONS (2)
  - Back pain [Recovered/Resolved]
  - Nephrolithiasis [Recovered/Resolved]

NARRATIVE: CASE EVENT DATE: 20190324
